FAERS Safety Report 10101661 (Version 1)
Quarter: 2014Q2

REPORT INFORMATION
  Report Type: Spontaneous
  Country: US (occurrence: None)
  Receive Date: 20140423
  Receipt Date: 20140423
  Transmission Date: 20141212
  Serious: No
  Sender: FDA-Public Use
  Company Number: None

PATIENT
  Age: 35 Year
  Sex: Female
  Weight: 61.24 kg

DRUGS (1)
  1. EPIDUO [Suspect]
     Indication: ACNE
     Dosage: ONE PUMP = 1 GRAM  ONCE DAILY APPLIED TO A SURFACE, USUALLY THE SKIN
     Route: 061
     Dates: start: 20140420, end: 20140420

REACTIONS (7)
  - Anxiety [None]
  - Application site erythema [None]
  - Application site swelling [None]
  - Skin irritation [None]
  - Pruritus [None]
  - Rash macular [None]
  - Application site warmth [None]
